FAERS Safety Report 6693253-0 (Version None)
Quarter: 2010Q2

REPORT INFORMATION
  Report Type: 
  Country: None (occurrence: None)
  Receive Date: 20100421
  Receipt Date: 20100421
  Transmission Date: 20101027
  Serious: Yes (Other)
  Sender: FDA-Public Use
  Company Number: None

PATIENT
  Age: 34 Year
  Sex: Female
  Weight: 59.8748 kg

DRUGS (1)
  1. CETIRIZINE HYDROCHLORIDE [Suspect]
     Indication: RHINITIS ALLERGIC
     Dosage: 10MG DAILY PO
     Route: 048
     Dates: start: 20100401, end: 20100420

REACTIONS (3)
  - DRUG DOSE OMISSION [None]
  - PRODUCT SUBSTITUTION ISSUE [None]
  - URTICARIA [None]
